FAERS Safety Report 12622658 (Version 2)
Quarter: 2016Q3

REPORT INFORMATION
  Report Type: Spontaneous
  Country: PK (occurrence: PK)
  Receive Date: 20160804
  Receipt Date: 20160812
  Transmission Date: 20161109
  Serious: Yes (Other)
  Sender: FDA-Public Use
  Company Number: PHHY2016PK105228

PATIENT
  Age: 50 Year
  Sex: Female

DRUGS (2)
  1. EBEDOCE [Suspect]
     Active Substance: DOCETAXEL
     Indication: BREAST CANCER
     Dosage: 75 MG/M2, UNK
     Route: 042
  2. LETARA [Concomitant]
     Indication: BREAST CANCER
     Route: 065

REACTIONS (7)
  - Infusion site necrosis [Recovered/Resolved]
  - Infusion site reaction [Recovered/Resolved]
  - Infusion site infection [Recovered/Resolved]
  - Infusion site swelling [Recovered/Resolved]
  - Infusion site rash [Recovered/Resolved]
  - Infusion site exfoliation [Recovered/Resolved]
  - Infusion site erythema [Recovered/Resolved]
